FAERS Safety Report 5663926-7 (Version None)
Quarter: 2008Q1

REPORT INFORMATION
  Report Type: 
  Country: None (occurrence: None)
  Receive Date: 20080311
  Receipt Date: 20080221
  Transmission Date: 20080703
  Serious: Yes (Hospitalization)
  Sender: FDA-Public Use
  Company Number: S08-FRA-00801-01

PATIENT
  Age: 77 Year
  Sex: Male

DRUGS (6)
  1. ESCITALOPRAM [Suspect]
     Indication: DEPRESSION
     Dosage: 1 QD PO
     Route: 048
     Dates: start: 20070601, end: 20070801
  2. PLAVIX [Concomitant]
  3. PREDNISOLONE [Concomitant]
  4. PERMIXON (SERENOA REPENS) [Concomitant]
  5. VASTAREL (TRIMETAZIDINE) [Concomitant]
  6. ACETAMINOPHEN [Concomitant]

REACTIONS (4)
  - CEREBELLAR SYNDROME [None]
  - CONFUSIONAL STATE [None]
  - HYPERKALAEMIA [None]
  - HYPONATRAEMIA [None]
